FAERS Safety Report 6028559-1 (Version None)
Quarter: 2009Q1

REPORT INFORMATION
  Report Type: 
  Country: None (occurrence: None)
  Receive Date: 20090106
  Receipt Date: 20081230
  Transmission Date: 20090719
  Serious: Yes (Life-Threatening, Hospitalization)
  Sender: FDA-Public Use
  Company Number: US-ELI_LILLY_AND_COMPANY-US200812006206

PATIENT
  Sex: Male
  Weight: 95.238 kg

DRUGS (27)
  1. BYETTA [Suspect]
     Indication: TYPE 2 DIABETES MELLITUS
     Dosage: 5 UG, 2/D
     Route: 058
     Dates: start: 20060323, end: 20060613
  2. BYETTA [Suspect]
     Dosage: 10 UG, 2/D
     Route: 058
     Dates: start: 20060613, end: 20080526
  3. GLUCOTROL [Concomitant]
     Dosage: 10 MG, 2/D
     Dates: end: 20060323
  4. GLUCOTROL [Concomitant]
     Dosage: 5 MG, 2/D
     Dates: start: 20060323
  5. AVANDIA [Concomitant]
     Dosage: UNK, UNKNOWN
  6. METFORMIN HCL [Concomitant]
     Dosage: UNK, UNKNOWN
  7. NIASPAN [Concomitant]
     Indication: DYSLIPIDAEMIA
     Dosage: 500 MG, EACH EVENING
     Dates: start: 20060623
  8. LISINOPRIL AND HYDROCHLOROTHIAZIDE [Concomitant]
     Indication: HYPERTENSION
     Dosage: UNK, DAILY (1/D)
  9. LISINOPRIL [Concomitant]
     Dosage: 40 MG, DAILY (1/D)
  10. CRESTOR [Concomitant]
     Indication: HYPERCHOLESTEROLAEMIA
     Dosage: 10 MG, DAILY (1/D)
     Dates: end: 20061215
  11. CRESTOR [Concomitant]
     Dosage: 20 MG, DAILY (1/D)
     Dates: start: 20061215
  12. LANTUS [Concomitant]
     Indication: TYPE 2 DIABETES MELLITUS
     Dosage: UNK, AS NEEDED
     Dates: start: 20070319
  13. IBUPROFEN TABLETS [Concomitant]
     Indication: SCIATICA
     Dosage: 800 MG, UNK
     Dates: start: 20080212
  14. ROBAXIN [Concomitant]
     Indication: SCIATICA
     Dosage: 750 MG, AS NEEDED
     Dates: start: 20080212
  15. NAPROSYN [Concomitant]
     Indication: SCIATICA
     Dosage: 500 MG, 2/D
     Route: 048
     Dates: start: 20080212
  16. CATAPRES                                /UNK/ [Concomitant]
     Dosage: 2 MG, 3/W
     Dates: start: 20080601
  17. NORVASC [Concomitant]
     Dosage: 10 MG, DAILY (1/D)
     Dates: start: 20080601
  18. PROTONIX [Concomitant]
     Dosage: 40 MG, DAILY (1/D)
     Route: 042
     Dates: start: 20080601
  19. REGLAN [Concomitant]
     Dosage: 10 MG, DAILY (1/D)
     Route: 042
     Dates: start: 20080601
  20. LASIX [Concomitant]
     Dosage: 40 MG, 2/D
     Route: 042
     Dates: start: 20080601
  21. DILAUDID [Concomitant]
     Dosage: UNK, AS NEEDED
     Dates: start: 20080601
  22. MORPHINE [Concomitant]
     Indication: PAIN
     Dosage: UNK, AS NEEDED
     Dates: start: 20080601
  23. ATIVAN [Concomitant]
     Dosage: UNK, AS NEEDED
     Route: 042
     Dates: start: 20080601
  24. ESOMEPRAZOLE MAGNESIUM [Concomitant]
     Indication: GASTROOESOPHAGEAL REFLUX DISEASE
     Dosage: 20 MG, DAILY (1/D)
     Dates: start: 20070515
  25. LEVAQUIN [Concomitant]
     Indication: ACUTE SINUSITIS
     Dosage: 500 MG, DAILY (1/D)
     Dates: start: 20070226, end: 20070301
  26. HUMULIN N [Concomitant]
     Indication: TYPE 2 DIABETES MELLITUS
     Dosage: 10 U, EACH EVENING
     Dates: start: 20080728
  27. HUMULIN R [Concomitant]
     Indication: TYPE 2 DIABETES MELLITUS
     Dosage: UNK, AS NEEDED
     Dates: start: 20080728

REACTIONS (2)
  - PANCREATITIS ACUTE [None]
  - RESPIRATORY FAILURE [None]
